FAERS Safety Report 21587038 (Version 1)
Quarter: 2022Q4

REPORT INFORMATION
  Report Type: Report from Study
  Country: US (occurrence: US)
  Receive Date: 20221113
  Receipt Date: 20221113
  Transmission Date: 20230113
  Serious: Yes (Hospitalization, Other)
  Sender: FDA-Public Use
  Company Number: US-ABBVIE-4195934

PATIENT
  Sex: Female

DRUGS (2)
  1. HUMIRA [Suspect]
     Active Substance: ADALIMUMAB
     Indication: Product used for unknown indication
     Route: 058
  2. HUMIRA [Suspect]
     Active Substance: ADALIMUMAB
     Route: 058

REACTIONS (6)
  - Hospitalisation [Unknown]
  - Pyoderma [Unknown]
  - Arthritis [Unknown]
  - Intestinal resection [Unknown]
  - Abdominal hernia [Unknown]
  - Illness [Unknown]

NARRATIVE: CASE EVENT DATE: 20210101
